FAERS Safety Report 12229758 (Version 1)
Quarter: 2016Q1

REPORT INFORMATION
  Report Type: Spontaneous
  Country: US (occurrence: None)
  Receive Date: 20160331
  Receipt Date: 20160331
  Transmission Date: 20160526
  Serious: Yes (Other)
  Sender: FDA-Public Use
  Company Number: None

PATIENT
  Age: 27 Year
  Sex: Female

DRUGS (1)
  1. RIBAVIRIN 200MG TEVA USA? [Suspect]
     Active Substance: RIBAVIRIN
     Indication: HEPATITIS C
     Dosage: ORAL 047 ORAL
     Route: 048

REACTIONS (2)
  - Abdominal discomfort [None]
  - Fatigue [None]

NARRATIVE: CASE EVENT DATE: 20160329
